FAERS Safety Report 6066732-7 (Version None)
Quarter: 2009Q1

REPORT INFORMATION
  Report Type: 
  Country: None (occurrence: None)
  Receive Date: 20090205
  Receipt Date: 20080228
  Transmission Date: 20090719
  Serious: No
  Sender: FDA-Public Use
  Company Number: US-ABBOTT-08P-163-0440766-00

PATIENT
  Age: 67 Year
  Sex: Female
  Weight: 75.364 kg

DRUGS (1)
  1. VICODIN [Suspect]
     Indication: POSTOPERATIVE ANALGESIA
     Dates: start: 20070901, end: 20070901

REACTIONS (2)
  - LETHARGY [None]
  - SOMNOLENCE [None]
